FAERS Safety Report 8821475 (Version 1)
Quarter: 2012Q4

REPORT INFORMATION
  Report Type: 
  Country: ES (occurrence: ES)
  Receive Date: 20121002
  Receipt Date: 20121002
  Transmission Date: 20130627
  Serious: Yes (Other)
  Sender: FDA-Public Use
  Company Number: PHHY2012ES083620

PATIENT
  Age: 73 Year
  Sex: Female

DRUGS (1)
  1. LOSARTAN SANDOZ [Suspect]
     Indication: HYPERTENSION
     Dosage: 1 DF, UNK
     Route: 048
     Dates: start: 20110411, end: 20120119

REACTIONS (2)
  - Dysphagia [Unknown]
  - Lip oedema [Unknown]
